FAERS Safety Report 9515422 (Version 3)
Quarter: 2013Q4

REPORT INFORMATION
  Report Type: Report from Study
  Country: BR (occurrence: BR)
  Receive Date: 20130911
  Receipt Date: 20131002
  Transmission Date: 20140711
  Serious: Yes (Other)
  Sender: FDA-Public Use
  Company Number: PHHY2013BR070588

PATIENT
  Sex: Female
  Weight: 70 kg

DRUGS (8)
  1. DIOVAN AMLO FIX [Suspect]
     Indication: HYPERTENSION
     Dosage: 1 DF, (160/5 MG) QD
     Dates: start: 2009
  2. VALSARTAN [Suspect]
     Indication: HYPERTENSION
     Dosage: 1 DF, (160/5 MG) QD
  3. GLIFAGE [Concomitant]
     Indication: GLUCOSE TOLERANCE IMPAIRED
     Dosage: 2 DF(500MG), DAILY
     Route: 048
  4. GLIFAGE [Concomitant]
     Dosage: 1 DF(500MG), QD AT NIGHT
     Route: 048
  5. RIVOTRIL [Concomitant]
     Indication: INSOMNIA
     Dosage: 3 DF, AT NIGHT NOT EVERY NIGHT
     Route: 048
  6. NEOSORO [Concomitant]
     Dosage: UNK UKN, AS NEEDED
     Route: 045
  7. OMEPRAZOLE [Concomitant]
     Indication: POLYMEDICATION
     Dosage: 1 DF(20MG), QD (IN FASTING)
     Route: 048
  8. NARIDRIN [Concomitant]
     Indication: NASAL OBSTRUCTION
     Dosage: UNK UKN, AS NEEDED AT NIGHT
     Route: 045

REACTIONS (7)
  - Type 2 diabetes mellitus [Unknown]
  - Osteoarthritis [Recovering/Resolving]
  - Pain [Not Recovered/Not Resolved]
  - Feeling abnormal [Not Recovered/Not Resolved]
  - Pyrexia [Not Recovered/Not Resolved]
  - Pharyngitis [Not Recovered/Not Resolved]
  - Fatigue [Not Recovered/Not Resolved]
